FAERS Safety Report 12529536 (Version 6)
Quarter: 2016Q3

REPORT INFORMATION
  Report Type: Spontaneous
  Country: JP (occurrence: JP)
  Receive Date: 20160706
  Receipt Date: 20160905
  Transmission Date: 20161109
  Serious: Yes (Death, Other)
  Sender: FDA-Public Use
  Company Number: JP-ROCHE-1788554

PATIENT
  Age: 3 Month
  Sex: Female

DRUGS (15)
  1. DENOSINE (JAPAN) [Suspect]
     Active Substance: GANCICLOVIR
     Route: 041
     Dates: start: 20160617, end: 20160621
  2. DENOSINE (JAPAN) [Suspect]
     Active Substance: GANCICLOVIR
     Dosage: 9 MG 1 IN 1 DAY
     Route: 041
     Dates: start: 20160615, end: 20160617
  3. DENOSINE (JAPAN) [Suspect]
     Active Substance: GANCICLOVIR
     Route: 041
     Dates: start: 20160811
  4. SANDIMMUN [Concomitant]
     Active Substance: CYCLOSPORINE
     Route: 042
     Dates: start: 20160701, end: 20160708
  5. PREDONINE [Concomitant]
     Active Substance: PREDNISOLONE\PREDNISOLONE ACETATE\PREDNISOLONE SODIUM SUCCINATE
     Indication: HISTIOCYTOSIS HAEMATOPHAGIC
     Dosage: 3 MG ,3 IN 1 DAY
     Route: 065
  6. DENOSINE (JAPAN) [Suspect]
     Active Substance: GANCICLOVIR
     Indication: CYTOMEGALOVIRUS INFECTION
     Dosage: 6 MG, 2 IN ONE DAY, MOST RECENT DOSE PRIOR TO AE: 14/JUN/2016
     Route: 041
     Dates: start: 20160608
  7. SANDIMMUN [Concomitant]
     Active Substance: CYCLOSPORINE
     Indication: HISTIOCYTOSIS HAEMATOPHAGIC
     Route: 042
     Dates: start: 20160608, end: 20160621
  8. DENOSINE (JAPAN) [Suspect]
     Active Substance: GANCICLOVIR
     Route: 041
     Dates: start: 20160622, end: 20160630
  9. SANDIMMUN [Concomitant]
     Active Substance: CYCLOSPORINE
     Route: 042
     Dates: start: 20160622, end: 20160630
  10. DENOSINE (JAPAN) [Suspect]
     Active Substance: GANCICLOVIR
     Route: 041
     Dates: start: 20160701, end: 20160718
  11. PREDONINE [Concomitant]
     Active Substance: PREDNISOLONE\PREDNISOLONE ACETATE\PREDNISOLONE SODIUM SUCCINATE
     Route: 042
  12. DENOSINE (JAPAN) [Suspect]
     Active Substance: GANCICLOVIR
     Dosage: 9.5 MG, 2 IN 1 DAY
     Route: 041
     Dates: start: 20160614, end: 20160615
  13. DENOSINE (JAPAN) [Suspect]
     Active Substance: GANCICLOVIR
     Route: 041
     Dates: start: 20160701, end: 20160718
  14. HUMAN NORMAL IMMUNOGLOBULIN [Concomitant]
     Active Substance: HUMAN IMMUNOGLOBULIN G
     Route: 065
     Dates: start: 20160602
  15. NEUTROGIN [Concomitant]
     Active Substance: LENOGRASTIM

REACTIONS (9)
  - Respiratory failure [Fatal]
  - Renal failure [Not Recovered/Not Resolved]
  - Urine output decreased [Not Recovered/Not Resolved]
  - White blood cell count decreased [Unknown]
  - Pulmonary haemorrhage [Fatal]
  - Off label use [Fatal]
  - Multiple organ dysfunction syndrome [Fatal]
  - Sepsis [Fatal]
  - Neutrophil count decreased [Unknown]

NARRATIVE: CASE EVENT DATE: 20160615
